FAERS Safety Report 15831298 (Version 1)
Quarter: 2018Q4

REPORT INFORMATION
  Report Type: Spontaneous
  Country: US (occurrence: US)
  Receive Date: 20181218
  Receipt Date: 20181218
  Transmission Date: 20190205
  Serious: No
  Sender: FDA-Public Use
  Company Number: None

PATIENT
  Age: 13 Year
  Sex: Male

DRUGS (1)
  1. NORDITROPIN [Suspect]
     Active Substance: SOMATROPIN
     Dates: start: 201812

REACTIONS (3)
  - Burning sensation [None]
  - Product substitution issue [None]
  - Injection site pain [None]

NARRATIVE: CASE EVENT DATE: 20181215
